FAERS Safety Report 5259677-3 (Version None)
Quarter: 2007Q1

REPORT INFORMATION
  Report Type: 
  Country: None (occurrence: None)
  Receive Date: 20070309
  Receipt Date: 20070226
  Transmission Date: 20070707
  Serious: Yes (Other)
  Sender: FDA-Public Use
  Company Number: HQWYE022207MAR07

PATIENT
  Age: 73 Year
  Sex: Male

DRUGS (2)
  1. TAZOCIN [Suspect]
     Indication: MORGANELLA INFECTION
     Dosage: UNKNOWN
  2. TAZOCIN [Suspect]
     Indication: CELLULITIS

REACTIONS (1)
  - DISSEMINATED INTRAVASCULAR COAGULATION [None]
